FAERS Safety Report 6027224-4 (Version None)
Quarter: 2009Q1

REPORT INFORMATION
  Report Type: 
  Country: None (occurrence: None)
  Receive Date: 20090105
  Receipt Date: 20081223
  Transmission Date: 20090719
  Serious: Yes (Other)
  Sender: FDA-Public Use
  Company Number: US-ELI_LILLY_AND_COMPANY-US200811004632

PATIENT
  Sex: Female
  Weight: 90.703 kg

DRUGS (2)
  1. BYETTA [Suspect]
     Indication: WEIGHT DECREASED
     Dosage: 10 UG, 2/D
     Route: 058
     Dates: start: 20070513, end: 20071115
  2. BYETTA [Suspect]
     Dosage: 10 UG, 2/D
     Route: 058
     Dates: start: 20071215, end: 20080110

REACTIONS (8)
  - ADENOCARCINOMA PANCREAS [None]
  - BACK PAIN [None]
  - DECREASED APPETITE [None]
  - FATIGUE [None]
  - HEPATIC CYST [None]
  - NAUSEA [None]
  - SPLENIC CYST [None]
  - WEIGHT DECREASED [None]
